FAERS Safety Report 11078997 (Version 1)
Quarter: 2015Q2

REPORT INFORMATION
  Report Type: Spontaneous
  Country: US (occurrence: US)
  Receive Date: 20150430
  Receipt Date: 20150430
  Transmission Date: 20150821
  Serious: Yes (Other)
  Sender: FDA-Public Use
  Company Number: US-PFIZER INC-2015144540

PATIENT
  Age: 34 Year
  Sex: Male

DRUGS (7)
  1. NICOTROL [Suspect]
     Active Substance: NICOTINE
     Dosage: 10 MG/ CARTRIDGE, AS DIRECTED, 12 CARTRIDGE PER DAY
  2. LORAZEPAM. [Concomitant]
     Active Substance: LORAZEPAM
     Dosage: 1 MG, 3X/DAY
     Route: 048
     Dates: start: 20150115, end: 20150414
  3. NEURONTIN [Concomitant]
     Active Substance: GABAPENTIN
     Dosage: 300 MG, 3X/DAY
     Route: 048
     Dates: start: 20150115, end: 20150414
  4. ZOLOFT [Concomitant]
     Active Substance: SERTRALINE HYDROCHLORIDE
     Dosage: 100 MG, 2X/DAY
     Route: 048
     Dates: start: 20150115, end: 20150414
  5. BENZTROPINE [Concomitant]
     Active Substance: BENZTROPINE
     Dosage: 1 MG, 1X/DAY
     Route: 048
     Dates: start: 20150115, end: 20150414
  6. IBUPROFEN. [Concomitant]
     Active Substance: IBUPROFEN
     Indication: PAIN
     Dosage: 800 MG, 3 TIMES A DAY AS NEEDED
     Route: 048
     Dates: start: 20141210, end: 20150309
  7. HALDOL [Concomitant]
     Active Substance: HALOPERIDOL
     Dosage: 20 MG, 1X/DAY
     Route: 048
     Dates: start: 20150115, end: 20150414

REACTIONS (8)
  - Dyslipidaemia [Unknown]
  - Tobacco abuse [Unknown]
  - Costochondritis [Unknown]
  - Panic disorder with agoraphobia [Unknown]
  - Back pain [Unknown]
  - Acute sinusitis [Unknown]
  - Schizoaffective disorder [Unknown]
  - Upper respiratory tract infection [Unknown]

NARRATIVE: CASE EVENT DATE: 20120831
